FAERS Safety Report 20724583 (Version 3)
Quarter: 2022Q2

REPORT INFORMATION
  Report Type: Spontaneous
  Country: JP (occurrence: JP)
  Receive Date: 20220419
  Receipt Date: 20220516
  Transmission Date: 20220720
  Serious: Yes (Hospitalization, Other)
  Sender: FDA-Public Use
  Company Number: JP-PFIZER INC-202200576781

PATIENT
  Age: 76 Year
  Sex: Male
  Weight: 59 kg

DRUGS (7)
  1. TOVIAZ [Suspect]
     Active Substance: FESOTERODINE FUMARATE
     Indication: Hypertonic bladder
     Dosage: 4 MG, 1X/DAY
     Route: 048
     Dates: start: 20220308, end: 20220331
  2. AMITIZA [Concomitant]
     Active Substance: LUBIPROSTONE
     Dosage: UNK
     Dates: end: 20220405
  3. XULTOPHY 100/3.6 [Concomitant]
     Active Substance: INSULIN DEGLUDEC\LIRAGLUTIDE
     Indication: Diabetes mellitus
     Dosage: 10 UNITS, 1X/DAY (BEFORE DINNER)
     Route: 048
     Dates: end: 20220405
  4. BETAMETHASONE BUTYRATE PROPIONATE [Concomitant]
     Active Substance: BETAMETHASONE BUTYRATE PROPIONATE
     Dosage: UNK
     Dates: end: 20220405
  5. FLURANDRENOLIDE [Concomitant]
     Active Substance: FLURANDRENOLIDE
     Dosage: UNK
     Dates: end: 20220405
  6. MAGNESIUM OXIDE [Concomitant]
     Active Substance: MAGNESIUM OXIDE
     Indication: Constipation
     Dosage: 660 MG, 1X/DAY (AFTER BREAKFAST)
     Route: 048
  7. NATEGLINIDE [Concomitant]
     Active Substance: NATEGLINIDE
     Indication: Diabetes mellitus
     Dosage: 90 MG, 3X/DAY (IMMEDIATELY BEFORE BREAKFAST/LUNCH/DINNER)
     Route: 048
     Dates: end: 20220324

REACTIONS (1)
  - Tubulointerstitial nephritis [Recovering/Resolving]

NARRATIVE: CASE EVENT DATE: 20220324
